FAERS Safety Report 7703472-X (Version None)
Quarter: 2011Q3

REPORT INFORMATION
  Report Type: 
  Country: None (occurrence: None)
  Receive Date: 20110823
  Receipt Date: 20110812
  Transmission Date: 20111222
  Serious: Yes (Other)
  Sender: FDA-Public Use
  Company Number: GB-JNJFOC-20110305704

PATIENT
  Sex: Female
  Weight: 50 kg

DRUGS (6)
  1. INFLIXIMAB, RECOMBINANT [Suspect]
     Indication: CROHN'S DISEASE
     Dosage: FOR 4 YEARS
     Route: 042
     Dates: start: 20000612
  2. ASACOL [Concomitant]
     Indication: INFLAMMATORY BOWEL DISEASE
     Route: 065
  3. INFLIXIMAB, RECOMBINANT [Suspect]
     Route: 042
     Dates: start: 20070101, end: 20110203
  4. MULTI-VITAMINS [Concomitant]
     Route: 065
  5. DIANETTE [Concomitant]
     Indication: CONTRACEPTION
     Route: 065
  6. PROPRANOLOL [Concomitant]
     Indication: ANXIETY
     Dosage: TAKEN 10 WEEKS BEFORE INLIXIMAB INFUSION
     Route: 065

REACTIONS (4)
  - HYPERTENSION [None]
  - INFUSION RELATED REACTION [None]
  - PALPITATIONS [None]
  - HEADACHE [None]
